FAERS Safety Report 23192936 (Version 1)
Quarter: 2023Q4

REPORT INFORMATION
  Report Type: Other
  Country: US (occurrence: US)
  Receive Date: 20231116
  Receipt Date: 20231116
  Transmission Date: 20240109
  Serious: No
  Sender: FDA-Public Use
  Company Number: US-TRAVERE-2023TVT00694

PATIENT
  Sex: Male

DRUGS (10)
  1. FILSPARI [Suspect]
     Active Substance: SPARSENTAN
     Indication: Haematuria
     Dosage: 200 MG
     Route: 048
     Dates: start: 20231019
  2. FILSPARI [Suspect]
     Active Substance: SPARSENTAN
     Indication: Chronic kidney disease
  3. FILSPARI [Suspect]
     Active Substance: SPARSENTAN
     Indication: Proteinuria
  4. PREDNISONE [Concomitant]
     Active Substance: PREDNISONE
  5. ATORVASTATIN [Concomitant]
     Active Substance: ATORVASTATIN
  6. CALCITRIOL [Concomitant]
     Active Substance: CALCITRIOL
  7. ATENOLOL [Concomitant]
     Active Substance: ATENOLOL
  8. FEBUXOSTAT [Concomitant]
     Active Substance: FEBUXOSTAT
  9. OMEPRAZOLE [Concomitant]
     Active Substance: OMEPRAZOLE
  10. VELTASSA [Concomitant]
     Active Substance: PATIROMER

REACTIONS (4)
  - Heart rate increased [Unknown]
  - Nausea [Unknown]
  - Decreased appetite [Unknown]
  - Product use in unapproved indication [Unknown]
